FAERS Safety Report 10433239 (Version 1)
Quarter: 2014Q3

REPORT INFORMATION
  Report Type: Report from Study
  Country: DE (occurrence: DE)
  Receive Date: 20140905
  Receipt Date: 20140905
  Transmission Date: 20150326
  Serious: Yes (Hospitalization)
  Sender: FDA-Public Use
  Company Number: DE-BAYER-2014-133335

PATIENT
  Age: 57 Year
  Sex: Female

DRUGS (1)
  1. EXTAVIA [Suspect]
     Active Substance: INTERFERON BETA-1B
     Indication: MULTIPLE SCLEROSIS
     Dosage: 250 ?G/ML, QOD
     Route: 058
     Dates: end: 20140902

REACTIONS (1)
  - Optic neuritis [Not Recovered/Not Resolved]

NARRATIVE: CASE EVENT DATE: 20140826
